FAERS Safety Report 18480488 (Version 1)
Quarter: 2020Q4

REPORT INFORMATION
  Report Type: Spontaneous
  Country: US (occurrence: US)
  Receive Date: 20201109
  Receipt Date: 20201109
  Transmission Date: 20210114
  Serious: Yes (Disabling)
  Sender: FDA-Public Use
  Company Number: None

PATIENT
  Age: 59 Year
  Sex: Male

DRUGS (1)
  1. EPCLUSA [Suspect]
     Active Substance: SOFOSBUVIR\VELPATASVIR
     Indication: HEPATITIS C
     Dosage: ?          QUANTITY:28 UNK - UNKNOWN;?
     Dates: start: 20200814, end: 20201106

REACTIONS (2)
  - Glomerular filtration rate abnormal [None]
  - Blood creatine increased [None]

NARRATIVE: CASE EVENT DATE: 20201106
